FAERS Safety Report 9708232 (Version 4)
Quarter: 2014Q1

REPORT INFORMATION
  Report Type: Spontaneous
  Country: GB (occurrence: GB)
  Receive Date: 20131125
  Receipt Date: 20140321
  Transmission Date: 20141002
  Serious: Yes (Death, Other)
  Sender: FDA-Public Use
  Company Number: GB-JNJFOC-20130807417

PATIENT
  Age: 65 Year
  Sex: Male
  Weight: 86.3 kg

DRUGS (9)
  1. STELARA [Suspect]
     Indication: PSORIASIS
     Dosage: APPROXIMATE TOTAL NUMBER OF INJECTIONS: 8
     Route: 058
     Dates: start: 201203
  2. ASPIRIN [Concomitant]
     Route: 048
  3. DIGOXIN [Concomitant]
     Route: 048
  4. RAMIPRIL [Concomitant]
     Route: 048
  5. ATORVASTATIN [Concomitant]
     Route: 048
  6. FUROSEMIDE [Concomitant]
     Route: 048
  7. METFORMIN [Concomitant]
     Route: 048
  8. AMITRIPTYLINE [Concomitant]
     Route: 048
  9. GABAPENTIN [Concomitant]
     Route: 048

REACTIONS (3)
  - Cardiac failure congestive [Fatal]
  - Acute myocardial infarction [Fatal]
  - Psoriasis [Recovering/Resolving]
